FAERS Safety Report 4384177-2 (Version None)
Quarter: 2004Q2

REPORT INFORMATION
  Report Type: 
  Country: None (occurrence: None)
  Receive Date: 20040621
  Receipt Date: 20040615
  Transmission Date: 20050107
  Serious: Yes (Other)
  Sender: FDA-Public Use
  Company Number: HQWYE462215JUN04

PATIENT
  Sex: Female

DRUGS (4)
  1. PREMPRO [Suspect]
     Indication: HORMONE REPLACEMENT THERAPY
     Dosage: 0.3 MG/1.5MG DAILY, ORAL
     Route: 048
     Dates: start: 20040101
  2. UNSPECIFIED ESTROGEN REPLACEMENT THERAPY [Suspect]
     Indication: HORMONE REPLACEMENT THERAPY
     Dosage: LOW DOSE DAILY, ORAL
     Route: 048
     Dates: start: 20020101
  3. UNSPECIFIED ANTIHYPERTENSIVE AGENT (UNSPECIFIED ANTIHYPERTENSIVE AGENT [Concomitant]
  4. UNSPECIFIED DIURETIC (UNSPECIFIED DIURETIC) [Concomitant]

REACTIONS (1)
  - VISUAL ACUITY REDUCED [None]
